FAERS Safety Report 16789472 (Version 1)
Quarter: 2019Q3

REPORT INFORMATION
  Report Type: Other
  Country: DE (occurrence: DE)
  Receive Date: 20190910
  Receipt Date: 20190910
  Transmission Date: 20191005
  Serious: Yes (Congenital Anomaly, Other)
  Sender: FDA-Public Use
  Company Number: DE-EMBRYOTOX-201104271

PATIENT
  Age: 9 Month
  Sex: Female
  Weight: 2.95 kg

DRUGS (25)
  1. LAMOTRIGIN [Suspect]
     Active Substance: LAMOTRIGINE
     Dosage: 275 MILLIGRAM, QD, FOR GESTATIONAL WEEK 13-15
     Route: 064
     Dates: start: 2011, end: 20111202
  2. LAMOTRIGIN [Suspect]
     Active Substance: LAMOTRIGINE
     Dosage: 250 MILLIGRAM, QD, FOR GESTATIONAL WEEK 10-12
     Route: 064
     Dates: start: 2011, end: 2011
  3. VIMPAT [Suspect]
     Active Substance: LACOSAMIDE
     Dosage: 100 MILLIGRAM, QD, FOR GESTATIONAL WEEK 14-15
     Route: 064
     Dates: start: 2011, end: 20111202
  4. LAMOTRIGIN [Suspect]
     Active Substance: LAMOTRIGINE
     Dosage: 250 MILLIGRAM, QD, FOR GESTATIONAL WEEK 12-13
     Route: 064
  5. VIMPAT [Suspect]
     Active Substance: LACOSAMIDE
     Dosage: 250 MILLIGRAM, QD, FOR GESTATIONAL WEEK 11-12
     Route: 064
     Dates: start: 2011, end: 20111202
  6. VIMPAT [Suspect]
     Active Substance: LACOSAMIDE
     Dosage: 250 MILLIGRAM, QD, FOR GESTATIONAL WEEK 11-12
     Route: 064
     Dates: start: 201103, end: 2011
  7. VIMPAT [Suspect]
     Active Substance: LACOSAMIDE
     Dosage: 150 MILLIGRAM, QD, FOR GESTATIONAL WEEK 13-14
     Route: 064
     Dates: start: 2011, end: 20111202
  8. ZEBINIX [Concomitant]
     Active Substance: ESLICARBAZEPINE ACETATE
     Dosage: 200 MILLIGRAM, QD, FOR GESTATIONAL WEEK 0-4.5
     Route: 064
     Dates: start: 201103, end: 20110323
  9. LAMOTRIGIN [Suspect]
     Active Substance: LAMOTRIGINE
     Indication: EPILEPSY
     Dosage: 300 MILLIGRAM, QD, FOR GESTATIONAL WEEK 10-11
     Route: 064
     Dates: start: 20110218
  10. LAMOTRIGIN [Suspect]
     Active Substance: LAMOTRIGINE
     Dosage: UNK
     Route: 064
     Dates: start: 2011, end: 20111202
  11. VIMPAT [Suspect]
     Active Substance: LACOSAMIDE
     Dosage: 150 MILLIGRAM, QD, FOR GESTATIONAL WEEK 11-12
     Route: 064
     Dates: start: 2011, end: 2011
  12. LAMOTRIGIN [Suspect]
     Active Substance: LAMOTRIGINE
     Dosage: 225 MILLIGRAM, QD, FOR GESTATIONAL WEEK 10-12
     Route: 064
  13. LAMOTRIGIN [Suspect]
     Active Substance: LAMOTRIGINE
     Dosage: 275 MILLIGRAM, QD, FOR GESTATIONAL WEEK 12-13
     Route: 064
     Dates: start: 2011, end: 2011
  14. VIMPAT [Suspect]
     Active Substance: LACOSAMIDE
     Dosage: 200 MILLIGRAM, QD, FOR GESTATIONAL WEEK 12-13
     Route: 064
     Dates: start: 2011, end: 20111202
  15. VIMPAT [Suspect]
     Active Substance: LACOSAMIDE
     Dosage: 150 MILLIGRAM, QD, GESTATIONAL WEEK: 12-13
     Route: 064
     Dates: start: 2011, end: 2011
  16. FOLIO FORTE [Concomitant]
     Active Substance: FOLIC ACID\VITAMINS
     Indication: PROPHYLAXIS OF NEURAL TUBE DEFECT
     Dosage: 0.4 MILLIGRAM, BID, FOR GESTATIONAL WEEK 8.3-41
     Route: 064
     Dates: start: 20110418, end: 20111202
  17. LAMOTRIGIN [Suspect]
     Active Substance: LAMOTRIGINE
     Dosage: 300 MILLIGRAM, QD
     Route: 064
     Dates: start: 201103, end: 2011
  18. VIMPAT [Suspect]
     Active Substance: LACOSAMIDE
     Dosage: 200 MILLIGRAM, QD, FOR GESTATIONAL WEEK 11-12
     Route: 064
     Dates: start: 2011, end: 2011
  19. VIMPAT [Suspect]
     Active Substance: LACOSAMIDE
     Dosage: 100 MILLIGRAM, QD, FOR GESTATIONAL WEEK 13-14
     Route: 064
     Dates: start: 2011, end: 20111202
  20. ZEBINIX [Concomitant]
     Active Substance: ESLICARBAZEPINE ACETATE
     Indication: EPILEPSY
     Dosage: UNK UNK, QD
     Route: 064
     Dates: start: 20110218, end: 20110323
  21. VIMPAT [Suspect]
     Active Substance: LACOSAMIDE
     Dosage: 250 MILLIGRAM, QD, FOR GESTATIONAL WEEK 10-11
     Route: 064
     Dates: start: 2011, end: 2011
  22. VIMPAT [Suspect]
     Active Substance: LACOSAMIDE
     Dosage: 50 M, GESTATIONAL WEEK: 14-15
     Route: 064
     Dates: start: 2011, end: 2011
  23. LAMOTRIGIN [Suspect]
     Active Substance: LAMOTRIGINE
     Dosage: 225 MILLIGRAM, QD, FOR GESTATIONAL WEEK 10-11
     Route: 064
     Dates: start: 2011, end: 2011
  24. LAMOTRIGIN [Suspect]
     Active Substance: LAMOTRIGINE
     Dosage: 300 MILLIGRAM, QD, FOR GESTATIONAL WEEK 13-15
     Route: 064
     Dates: start: 2011, end: 2011
  25. VIMPAT [Suspect]
     Active Substance: LACOSAMIDE
     Indication: EPILEPSY
     Dosage: 250 MILLIGRAM, QD, FOR GESTATIONAL WEEK 10-11
     Route: 064
     Dates: start: 20110218, end: 2011

REACTIONS (4)
  - Atrial septal defect [Recovered/Resolved]
  - Small for dates baby [Unknown]
  - Directional Doppler flow tests abnormal [Recovered/Resolved]
  - Maternal exposure during pregnancy [Unknown]

NARRATIVE: CASE EVENT DATE: 201103
